FAERS Safety Report 5241710-6 (Version None)
Quarter: 2007Q1

REPORT INFORMATION
  Report Type: 
  Country: None (occurrence: None)
  Receive Date: 20070220
  Receipt Date: 20070213
  Transmission Date: 20070707
  Serious: Yes (Hospitalization)
  Sender: FDA-Public Use
  Company Number: IT-ROCHE-482648

PATIENT
  Age: 61 Year
  Sex: Female

DRUGS (3)
  1. ROCEPHIN [Suspect]
     Indication: PNEUMONIA
     Dosage: FORM REPORTED AS VIAL.
     Route: 030
     Dates: start: 20070212, end: 20070212
  2. MONOKET [Concomitant]
     Route: 048
  3. LASIX [Concomitant]
     Route: 048

REACTIONS (3)
  - ANAPHYLACTIC SHOCK [None]
  - BRAIN DAMAGE [None]
  - CARDIO-RESPIRATORY ARREST [None]
